FAERS Safety Report 13644161 (Version 1)
Quarter: 2017Q2

REPORT INFORMATION
  Report Type: Spontaneous
  Country: US (occurrence: US)
  Receive Date: 20170612
  Receipt Date: 20170612
  Transmission Date: 20170830
  Serious: Yes (Hospitalization)
  Sender: FDA-Public Use
  Company Number: US-ACTELION-A-NJ2017-154970

PATIENT
  Age: 66 Year
  Sex: Female

DRUGS (1)
  1. OPSUMIT [Suspect]
     Active Substance: MACITENTAN
     Indication: PULMONARY ARTERIAL HYPERTENSION
     Dosage: 10 MG, QD
     Route: 048
     Dates: start: 20161119

REACTIONS (4)
  - Gastrooesophageal reflux disease [Recovered/Resolved]
  - Platelet count decreased [Recovered/Resolved]
  - Dehydration [Recovered/Resolved]
  - Oesophageal haemorrhage [Recovered/Resolved]
